FAERS Safety Report 9787769 (Version 3)
Quarter: 2014Q2

REPORT INFORMATION
  Report Type: Spontaneous
  Country: US (occurrence: US)
  Receive Date: 20131230
  Receipt Date: 20140425
  Transmission Date: 20141212
  Serious: Yes (Other)
  Sender: FDA-Public Use
  Company Number: US-JNJFOC-20131210567

PATIENT
  Age: 37 Year
  Sex: Female
  Weight: 86.18 kg

DRUGS (4)
  1. STELARA [Suspect]
     Indication: PSORIASIS
     Route: 058
     Dates: start: 20130924, end: 20140314
  2. STELARA [Suspect]
     Indication: PSORIASIS
     Route: 058
     Dates: start: 20140401
  3. STELARA [Suspect]
     Indication: PSORIASIS
     Route: 058
     Dates: start: 20130924, end: 20140314
  4. STELARA [Suspect]
     Indication: PSORIASIS
     Route: 058
     Dates: start: 20140401

REACTIONS (1)
  - Pneumonia [Recovered/Resolved]
